FAERS Safety Report 6453285-4 (Version None)
Quarter: 2009Q4

REPORT INFORMATION
  Report Type: 
  Country: None (occurrence: None)
  Receive Date: 20091117
  Receipt Date: 20090929
  Transmission Date: 20100525
  Serious: Yes (Congenital Anomaly)
  Sender: FDA-Public Use
  Company Number: 2009SP027798

PATIENT
  Age: 1 Day
  Sex: Male

DRUGS (2)
  1. NASONEX [Suspect]
     Indication: DRUG EXPOSURE DURING PREGNANCY
     Dosage: TRPL
     Route: 064
  2. AMOXICILLIN TRIHYDRATE [Suspect]
     Indication: DRUG EXPOSURE DURING PREGNANCY
     Dosage: TRPL
     Route: 064

REACTIONS (3)
  - CONGENITAL SKIN DISORDER [None]
  - MATERNAL DRUGS AFFECTING FOETUS [None]
  - SCAR [None]
